FAERS Safety Report 9258382 (Version 1)
Quarter: 2013Q2

REPORT INFORMATION
  Report Type: Spontaneous
  Country: US (occurrence: None)
  Receive Date: 20130424
  Receipt Date: 20130424
  Transmission Date: 20140414
  Serious: No
  Sender: FDA-Public Use
  Company Number: None

PATIENT
  Age: 49 Year
  Sex: Male

DRUGS (1)
  1. EGRIFTA [Suspect]
     Route: 058

REACTIONS (3)
  - Nausea [None]
  - Somnolence [None]
  - Rash [None]
